FAERS Safety Report 9967500 (Version 2)
Quarter: 2014Q3

REPORT INFORMATION
  Report Type: Report from Study
  Country: US (occurrence: US)
  Receive Date: 20140305
  Receipt Date: 20140912
  Transmission Date: 20150326
  Serious: Yes (Other)
  Sender: FDA-Public Use
  Company Number: US-ABBVIE-13P-163-1138480-00

PATIENT
  Sex: Male

DRUGS (14)
  1. FUROSEMIDE. [Concomitant]
     Active Substance: FUROSEMIDE
     Indication: PRODUCT USED FOR UNKNOWN INDICATION
  2. HUMIRA [Suspect]
     Active Substance: ADALIMUMAB
     Indication: ANKYLOSING SPONDYLITIS
     Dates: end: 2014
  3. FOLIC ACID. [Concomitant]
     Active Substance: FOLIC ACID
     Indication: PRODUCT USED FOR UNKNOWN INDICATION
  4. METHOTREXATE [Concomitant]
     Active Substance: METHOTREXATE
     Dates: start: 201407
  5. HUMIRA [Suspect]
     Active Substance: ADALIMUMAB
     Dates: start: 201407
  6. PREDNISONE. [Concomitant]
     Active Substance: PREDNISONE
     Indication: EYE DISORDER
     Dates: end: 201408
  7. METHOTREXATE [Concomitant]
     Active Substance: METHOTREXATE
     Indication: PRODUCT USED FOR UNKNOWN INDICATION
     Dates: end: 2014
  8. HYDROCODONE [Concomitant]
     Active Substance: HYDROCODONE
     Dosage: 7.5 MG/325 MG
  9. EYE DROPS [Concomitant]
     Active Substance: TETRAHYDROZOLINE HYDROCHLORIDE
     Indication: PRODUCT USED FOR UNKNOWN INDICATION
  10. NIFEDIPINE. [Concomitant]
     Active Substance: NIFEDIPINE
     Indication: HYPERTENSION
     Dosage: 60 MG DAILY
  11. OTHER MEDICATION [Concomitant]
     Active Substance: UNSPECIFIED INGREDIENT
     Indication: PRODUCT USED FOR UNKNOWN INDICATION
  12. CETRIZINE [Concomitant]
     Active Substance: CETIRIZINE HYDROCHLORIDE
     Indication: SEASONAL ALLERGY
     Dosage: QD
  13. HYDROCODONE [Concomitant]
     Active Substance: HYDROCODONE
     Indication: PRODUCT USED FOR UNKNOWN INDICATION
     Dosage: 7.5 MG/500 MG
  14. VITAMIN D3 [Concomitant]
     Active Substance: CHOLECALCIFEROL
     Indication: PRODUCT USED FOR UNKNOWN INDICATION

REACTIONS (4)
  - Injection site pain [Not Recovered/Not Resolved]
  - Visual impairment [Recovering/Resolving]
  - Cataract [Recovering/Resolving]
  - Cataract [Recovering/Resolving]

NARRATIVE: CASE EVENT DATE: 2012
